FAERS Safety Report 14758939 (Version 2)
Quarter: 2018Q3

REPORT INFORMATION
  Report Type: Spontaneous
  Country: BE (occurrence: BE)
  Receive Date: 20180413
  Receipt Date: 20180814
  Transmission Date: 20181010
  Serious: Yes (Life-Threatening, Hospitalization)
  Sender: FDA-Public Use
  Company Number: BE-TEVA-2018-BE-880872

PATIENT
  Age: 68 Year
  Sex: Male
  Weight: 100 kg

DRUGS (10)
  1. CETIRIZINE [Concomitant]
     Active Substance: CETIRIZINE HYDROCHLORIDE
     Route: 048
     Dates: start: 20171115, end: 20171115
  2. SOLU?MEDROL [Concomitant]
     Active Substance: METHYLPREDNISOLONE SODIUM SUCCINATE
     Indication: ANAPHYLACTIC REACTION
     Route: 040
  3. AACIDEXAM [Concomitant]
     Active Substance: DEXAMETHASONE
     Dates: start: 20171115, end: 20171115
  4. PACLITAXEL 6MG/ML CONCENTRATE FOR SOLUTION FOR INFUSION [Suspect]
     Active Substance: PACLITAXEL
     Indication: PRODUCT USED FOR UNKNOWN INDICATION
     Route: 042
  5. ZANTAC [Concomitant]
     Active Substance: RANITIDINE HYDROCHLORIDE
     Indication: PREMEDICATION
     Dates: start: 20171115, end: 20171115
  6. EMEND [Concomitant]
     Active Substance: APREPITANT
     Route: 048
     Dates: start: 20171115, end: 20171115
  7. PACLITAXEL FRESENIUS KABI [Suspect]
     Active Substance: PACLITAXEL
     Route: 042
     Dates: start: 20171115, end: 20171115
  8. PHENERGAN [Concomitant]
     Active Substance: PROMETHAZINE HYDROCHLORIDE
     Indication: ANAPHYLACTIC REACTION
     Route: 030
  9. DEXAMETHASONE. [Concomitant]
     Active Substance: DEXAMETHASONE
     Indication: PREMEDICATION
  10. CARBOPLATIN. [Concomitant]
     Active Substance: CARBOPLATIN
     Indication: PRODUCT USED FOR UNKNOWN INDICATION
     Route: 040
     Dates: start: 20171115, end: 20171115

REACTIONS (8)
  - Skin lesion [Recovered/Resolved with Sequelae]
  - Blood pressure increased [Not Recovered/Not Resolved]
  - Rash [Recovered/Resolved with Sequelae]
  - Chest discomfort [Recovered/Resolved]
  - Sense of oppression [Recovered/Resolved with Sequelae]
  - Oxygen saturation decreased [Recovered/Resolved with Sequelae]
  - Anaphylactic reaction [Recovered/Resolved with Sequelae]
  - Bronchospasm [Not Recovered/Not Resolved]

NARRATIVE: CASE EVENT DATE: 20171115
